FAERS Safety Report 25255398 (Version 3)
Quarter: 2025Q3

REPORT INFORMATION
  Report Type: Report from Study
  Country: US (occurrence: US)
  Receive Date: 20250430
  Receipt Date: 20250724
  Transmission Date: 20251021
  Serious: No
  Sender: ACADIA PHARMACEUTICALS
  Company Number: US-ACADIA PHARMACEUTICALS INC.-ACA-2025-TRF-004800

PATIENT
  Sex: Female

DRUGS (3)
  1. DAYBUE [Suspect]
     Active Substance: TROFINETIDE
     Indication: Rett syndrome
     Dosage: 40 MILLILITER, BID
     Route: 048
  2. DAYBUE [Suspect]
     Active Substance: TROFINETIDE
     Route: 048
  3. DAYBUE [Suspect]
     Active Substance: TROFINETIDE
     Route: 048

REACTIONS (9)
  - Expulsion of medication [Not Recovered/Not Resolved]
  - Cough [Not Recovered/Not Resolved]
  - Insomnia [Not Recovered/Not Resolved]
  - Faeces soft [Not Recovered/Not Resolved]
  - Gait disturbance [Recovering/Resolving]
  - Product use complaint [Not Recovered/Not Resolved]
  - Product use complaint [Not Recovered/Not Resolved]
  - Intentional dose omission [Not Recovered/Not Resolved]
  - Underdose [Not Recovered/Not Resolved]
